FAERS Safety Report 7867474-5 (Version None)
Quarter: 2011Q4

REPORT INFORMATION
  Report Type: 
  Country: None (occurrence: None)
  Receive Date: 20111028
  Receipt Date: 20111021
  Transmission Date: 20120403
  Serious: Yes (Other)
  Sender: FDA-Public Use
  Company Number: US-BAYER-2011-103041

PATIENT
  Sex: Female

DRUGS (1)
  1. MIRENA [Suspect]
     Dosage: UNK
     Route: 015
     Dates: start: 20090101, end: 20110303

REACTIONS (4)
  - HYPOMENORRHOEA [None]
  - URINARY RETENTION [None]
  - CYST [None]
  - ENDOMETRIAL ATROPHY [None]
